FAERS Safety Report 25353957 (Version 2)
Quarter: 2025Q2

REPORT INFORMATION
  Report Type: Spontaneous
  Country: BE (occurrence: BE)
  Receive Date: 20250523
  Receipt Date: 20250529
  Transmission Date: 20250717
  Serious: Yes (Other)
  Sender: PFIZER
  Company Number: BE-PFIZER INC-PV202500060953

PATIENT
  Age: 31 Year
  Sex: Female

DRUGS (1)
  1. TOFACITINIB CITRATE [Suspect]
     Active Substance: TOFACITINIB CITRATE

REACTIONS (6)
  - Dermatitis exfoliative generalised [Unknown]
  - Rash pustular [Unknown]
  - Rash [Unknown]
  - Skin lesion [Unknown]
  - Inflammation [Unknown]
  - Pustular psoriasis [Unknown]
